FAERS Safety Report 6596902-0 (Version None)
Quarter: 2010Q1

REPORT INFORMATION
  Report Type: 
  Country: None (occurrence: None)
  Receive Date: 20100223
  Receipt Date: 20100218
  Transmission Date: 20100710
  Serious: Yes (Life-Threatening, Hospitalization)
  Sender: FDA-Public Use
  Company Number: IT-CELGENEUS-083-21880-10011259

PATIENT
  Sex: Female

DRUGS (4)
  1. REVLIMID [Suspect]
     Route: 048
     Dates: start: 20091123, end: 20091213
  2. REVLIMID [Suspect]
     Dosage: DOSE LOWERED
     Route: 048
  3. ASPIRIN [Concomitant]
     Route: 048
  4. BACTRIM [Concomitant]
     Indication: PROPHYLAXIS
     Route: 048

REACTIONS (3)
  - CAMPYLOBACTER GASTROENTERITIS [None]
  - FEBRILE INFECTION [None]
  - NEUTROPENIA [None]
